FAERS Safety Report 7655337-X (Version None)
Quarter: 2011Q3

REPORT INFORMATION
  Report Type: 
  Country: None (occurrence: None)
  Receive Date: 20110804
  Receipt Date: 20110720
  Transmission Date: 20111222
  Serious: Yes (Hospitalization)
  Sender: FDA-Public Use
  Company Number: US-ELI_LILLY_AND_COMPANY-US201105003359

PATIENT
  Sex: Female
  Weight: 64.853 kg

DRUGS (9)
  1. CALCIUM W/VITAMIN D                /00188401/ [Concomitant]
  2. ESTRACE [Concomitant]
     Dosage: UNK, 2/W
  3. VICODIN [Concomitant]
     Dosage: UNK, PRN
  4. CELEBREX [Concomitant]
     Route: 048
  5. COLACE [Concomitant]
  6. LOVAZA [Concomitant]
     Dosage: UNK, QD
  7. ASCORBIC ACID [Concomitant]
     Dosage: UNK, QD
  8. FORTEO [Suspect]
     Indication: OSTEOPOROSIS
     Dosage: 20 UG, QD
     Route: 058
     Dates: start: 20100929
  9. EXCEDRIN (MIGRAINE) [Concomitant]
     Dosage: UNK, PRN

REACTIONS (1)
  - OSTEOARTHRITIS [None]
